FAERS Safety Report 5212666-7 (Version None)
Quarter: 2006Q4

REPORT INFORMATION
  Report Type: 
  Country: None (occurrence: None)
  Receive Date: 20061114
  Receipt Date: 20061011
  Transmission Date: 20070319
  Serious: No
  Sender: FDA-Public Use
  Company Number: S06-USA-04239-01

PATIENT
  Age: 71 Year
  Sex: Male

DRUGS (10)
  1. NAMENDA [Suspect]
     Indication: DEMENTIA ALZHEIMER'S TYPE
     Dosage: 15 MG QD PO
     Route: 048
     Dates: start: 20061001, end: 20061007
  2. NAMENDA [Suspect]
     Indication: DEMENTIA ALZHEIMER'S TYPE
     Dosage: 10 MG BID PO
     Route: 048
     Dates: start: 20061008
  3. NAMENDA [Suspect]
     Indication: DEMENTIA ALZHEIMER'S TYPE
     Dosage: 5 MG QD PO
     Route: 048
     Dates: start: 20060917, end: 20060923
  4. NAMENDA [Suspect]
     Indication: DEMENTIA ALZHEIMER'S TYPE
     Dosage: 5 MG BID PO
     Route: 048
     Dates: start: 20060924, end: 20060930
  5. PROZAC [Concomitant]
  6. ARICEPT [Concomitant]
  7. TRIGLYCERIDE MEDICATION (NOS) [Concomitant]
  8. CHOLESTEROL MEDICATION (NOS) [Concomitant]
  9. ACID REFLUX MEDICATION (NOS) [Concomitant]
  10. WATER RETENTION MEDICATION (NOS) [Concomitant]

REACTIONS (1)
  - ANGER [None]
